FAERS Safety Report 5207284-0 (Version None)
Quarter: 2007Q1

REPORT INFORMATION
  Report Type: 
  Country: None (occurrence: None)
  Receive Date: 20070112
  Receipt Date: 20061229
  Transmission Date: 20070707
  Serious: Yes (Other)
  Sender: FDA-Public Use
  Company Number: VE-ABBOTT-07P-178-0355501-00

PATIENT
  Sex: Male
  Weight: 120 kg

DRUGS (3)
  1. REDUCTIL 10MG [Suspect]
     Indication: OBESITY
     Route: 048
     Dates: start: 20061120, end: 20061129
  2. REDUCTIL 10MG [Suspect]
     Route: 048
     Dates: start: 20061211, end: 20061214
  3. REDUCTIL 10MG [Suspect]
     Route: 048
     Dates: start: 20061223, end: 20061229

REACTIONS (3)
  - ANAL FISSURE [None]
  - DIARRHOEA [None]
  - HAEMORRHOIDS [None]
